FAERS Safety Report 12652423 (Version 3)
Quarter: 2016Q3

REPORT INFORMATION
  Report Type: Spontaneous
  Country: US (occurrence: US)
  Receive Date: 20160815
  Receipt Date: 20160920
  Transmission Date: 20161109
  Serious: No
  Sender: FDA-Public Use
  Company Number: US-PFIZER INC-2016368860

PATIENT
  Age: 62 Year
  Sex: Female

DRUGS (1)
  1. TETRACYCLINE HCL [Suspect]
     Active Substance: TETRACYCLINE HYDROCHLORIDE
     Dosage: UNK

REACTIONS (5)
  - Drug hypersensitivity [Unknown]
  - Swelling [Unknown]
  - Urticaria [Unknown]
  - Drug intolerance [Unknown]
  - Rash [Unknown]

NARRATIVE: CASE EVENT DATE: 20111025
